FAERS Safety Report 8477822-3 (Version None)
Quarter: 2012Q2

REPORT INFORMATION
  Report Type: 
  Country: None (occurrence: None)
  Receive Date: 20120629
  Receipt Date: 20120625
  Transmission Date: 20120825
  Serious: Yes (Other)
  Sender: FDA-Public Use
  Company Number: US-PFIZER INC-2012153393

PATIENT
  Sex: Female

DRUGS (1)
  1. PRISTIQ [Suspect]
     Indication: DEPRESSION
     Dosage: 100 MG, UNK

REACTIONS (5)
  - SUICIDAL IDEATION [None]
  - LETHARGY [None]
  - MOOD ALTERED [None]
  - TEARFULNESS [None]
  - DRUG INEFFECTIVE [None]
